FAERS Safety Report 4932077-9 (Version None)
Quarter: 2006Q1

REPORT INFORMATION
  Report Type: 
  Country: None (occurrence: None)
  Receive Date: 20060228
  Receipt Date: 20060210
  Transmission Date: 20060701
  Serious: Yes (Hospitalization)
  Sender: FDA-Public Use
  Company Number: JP200601005200

PATIENT
  Age: 72 Year
  Sex: Male

DRUGS (3)
  1. ZYPREXA [Suspect]
  2. PERMAX (PERGOLIDE MESYLATE UNKNOWN FORMULATION) UNKNOWN [Suspect]
  3. LAXATIVES [Concomitant]

REACTIONS (1)
  - RED BLOOD CELL COUNT DECREASED [None]
